FAERS Safety Report 17476624 (Version 1)
Quarter: 2020Q1

REPORT INFORMATION
  Report Type: Report from Study
  Country: US (occurrence: US)
  Receive Date: 20200228
  Receipt Date: 20200228
  Transmission Date: 20200409
  Serious: Yes (Other)
  Sender: FDA-Public Use
  Company Number: US-AUROBINDO-AUR-APL-2020-009519

PATIENT
  Sex: Male

DRUGS (13)
  1. KETAMINE [Suspect]
     Active Substance: KETAMINE
     Dosage: 0.25 MGLKG/H (FROM INCISION TO SKIN CLOSURE)
     Route: 065
  2. ACETAMINOPHEN. [Suspect]
     Active Substance: ACETAMINOPHEN
     Dosage: SUPPLEMENTAL POSTOPERATIVE ANALGESIA
     Route: 048
  3. METHADONE [Suspect]
     Active Substance: METHADONE HYDROCHLORIDE
     Indication: ANALGESIC THERAPY
     Dosage: 0.20.3 MG/KG (PRIOR TO INCISION)
     Route: 040
  4. ACETAMINOPHEN. [Suspect]
     Active Substance: ACETAMINOPHEN
     Indication: ANALGESIC THERAPY
     Dosage: 15 MILLIGRAM/KILOGRAM (PRIOR TO EMERGENCE)
     Route: 040
  5. LIDOCAINE. [Suspect]
     Active Substance: LIDOCAINE
     Indication: ANALGESIC THERAPY
     Dosage: 1 MILLIGRAM/KILOGRAM (PRIOR TO INCISION)
     Route: 040
  6. LIDOCAINE. [Suspect]
     Active Substance: LIDOCAINE
     Dosage: 1.5 MG/KG/H (FROM INCISION TO SKIN CLOSURE)
     Route: 065
  7. SUGAMMADEX [Concomitant]
     Active Substance: SUGAMMADEX
     Indication: PRODUCT USED FOR UNKNOWN INDICATION
     Dosage: BEFORE THE EMERGENCE
     Route: 065
  8. ROPIVACAINE HYDROCHLORIDE. [Suspect]
     Active Substance: ROPIVACAINE HYDROCHLORIDE
     Indication: ANALGESIC THERAPY
     Dosage: 0.5 MILLILITRE PER KILOGRAM (PRIOR TO EMERGENCE)
     Route: 065
  9. KETAMINE [Suspect]
     Active Substance: KETAMINE
     Indication: ANALGESIC THERAPY
     Dosage: 0.5 MILLIGRAM/KILOGRAM (PRIOR TO INCISION)
     Route: 040
  10. ONDANSETRON [Concomitant]
     Active Substance: ONDANSETRON
     Indication: PROPHYLAXIS OF NAUSEA AND VOMITING
     Dosage: UNK
     Route: 065
  11. DEXAMETHASONE. [Concomitant]
     Active Substance: DEXAMETHASONE
     Indication: PROPHYLAXIS OF NAUSEA AND VOMITING
     Dosage: UNK
     Route: 065
  12. KETOROLAC TROMETHAMINE. [Suspect]
     Active Substance: KETOROLAC TROMETHAMINE
     Indication: ANALGESIC THERAPY
     Dosage: SUPPLEMENTAL POSTOPERATIVE ANALGESIA
     Route: 065
  13. ROCURONIUM [Concomitant]
     Active Substance: ROCURONIUM BROMIDE
     Indication: PRODUCT USED FOR UNKNOWN INDICATION
     Dosage: UNK
     Route: 065

REACTIONS (2)
  - Hypoventilation [Recovered/Resolved]
  - Hypoxia [Recovered/Resolved]
